FAERS Safety Report 10017620 (Version 3)
Quarter: 2014Q3

REPORT INFORMATION
  Report Type: Spontaneous
  Country: US (occurrence: US)
  Receive Date: 20140318
  Receipt Date: 20140813
  Transmission Date: 20150326
  Serious: Yes (Life-Threatening, Other)
  Sender: FDA-Public Use
  Company Number: US-BAYER-2014-037929

PATIENT
  Age: 25 Year
  Sex: Female
  Weight: 58 kg

DRUGS (2)
  1. MIRENA [Suspect]
     Active Substance: LEVONORGESTREL
     Indication: CONTRACEPTION
     Dosage: 20 MCG/24HR, CONT
     Route: 015
     Dates: start: 20131015, end: 201401
  2. PITOCIN [Concomitant]
     Active Substance: OXYTOCIN
     Dosage: UNK
     Dates: start: 20130819

REACTIONS (13)
  - Injury [None]
  - Pain [None]
  - Uterine perforation [None]
  - Emotional distress [None]
  - Infection [None]
  - Abdominal pain lower [None]
  - Scar [None]
  - Amenorrhoea [None]
  - Anxiety [None]
  - Device issue [None]
  - General physical health deterioration [None]
  - Anhedonia [None]
  - Coccydynia [None]

NARRATIVE: CASE EVENT DATE: 20131015
